FAERS Safety Report 9419653 (Version 1)
Quarter: 2013Q3

REPORT INFORMATION
  Report Type: Report from Study
  Country: BR (occurrence: BR)
  Receive Date: 20130725
  Receipt Date: 20130725
  Transmission Date: 20140515
  Serious: Yes (Other)
  Sender: FDA-Public Use
  Company Number: PHHY2013BR078929

PATIENT
  Sex: Female

DRUGS (3)
  1. DIOVAN HCT [Suspect]
     Dosage: UNK UKN, (80/12.5 MG)
  2. DIOVAN HCT [Suspect]
     Dosage: 1 DF, (160/12.5 MG) DAILY
  3. DIOVAN HCT [Suspect]
     Dosage: 2 DF, (160/12.5 MG) DAILY

REACTIONS (2)
  - Diabetes mellitus [Unknown]
  - Blood pressure increased [Unknown]
